FAERS Safety Report 5469619-3 (Version None)
Quarter: 2007Q3

REPORT INFORMATION
  Report Type: 
  Country: None (occurrence: None)
  Receive Date: 20070925
  Receipt Date: 20070925
  Transmission Date: 20080115
  Serious: Yes (Death)
  Sender: FDA-Public Use
  Company Number: None

PATIENT
  Age: 32 Year
  Sex: Female
  Weight: 68.0396 kg

DRUGS (3)
  1. METHADONE HCL [Suspect]
     Indication: BACK PAIN
     Dosage: 2.5-5MG EVERY 12 HOURS PO
     Route: 048
     Dates: start: 20070620, end: 20070625
  2. METHADONE HCL [Suspect]
     Indication: PAIN
     Dosage: 2.5-5MG EVERY 12 HOURS PO
     Route: 048
     Dates: start: 20070620, end: 20070625
  3. METHADONE HCL [Suspect]
     Indication: TREMOR
     Dosage: 2.5-5MG EVERY 12 HOURS PO
     Route: 048
     Dates: start: 20070620, end: 20070625

REACTIONS (1)
  - CARDIO-RESPIRATORY ARREST [None]
